FAERS Safety Report 5743886-0 (Version None)
Quarter: 2008Q2

REPORT INFORMATION
  Report Type: 
  Country: None (occurrence: None)
  Receive Date: 20080520
  Receipt Date: 20080509
  Transmission Date: 20081010
  Serious: Yes (Death, Hospitalization)
  Sender: FDA-Public Use
  Company Number: JP-ELI_LILLY_AND_COMPANY-JP200804003020

PATIENT
  Sex: Male
  Weight: 72.5 kg

DRUGS (5)
  1. GEMZAR [Suspect]
     Indication: BILE DUCT CANCER
     Dosage: 1700 MG, OTHER
     Route: 042
     Dates: start: 20070613, end: 20070613
  2. GEMZAR [Suspect]
     Dosage: 1300 MG, OTHER
     Route: 042
     Dates: start: 20070627, end: 20080327
  3. MAGMITT [Concomitant]
     Indication: CONSTIPATION
     Dosage: 1500 MG, DAILY (1/D)
     Route: 048
     Dates: start: 20070516, end: 20080405
  4. URSO 250 [Concomitant]
     Indication: PROPHYLAXIS
     Dosage: 300 MG, DAILY (1/D)
     Route: 048
     Dates: start: 20070604, end: 20080328
  5. URSO 250 [Concomitant]
     Dosage: 600 MG, DAILY (1/D)
     Route: 048
     Dates: start: 20080329, end: 20080405

REACTIONS (4)
  - CHOLANGITIS ACUTE [None]
  - HAEMOGLOBIN DECREASED [None]
  - INTERSTITIAL LUNG DISEASE [None]
  - PLATELET COUNT DECREASED [None]
